FAERS Safety Report 8167253-8 (Version None)
Quarter: 2012Q1

REPORT INFORMATION
  Report Type: 
  Country: None (occurrence: None)
  Receive Date: 20120227
  Receipt Date: 20120217
  Transmission Date: 20120608
  Serious: No
  Sender: FDA-Public Use
  Company Number: US-BAYER-2012-017326

PATIENT
  Age: 52 Year
  Sex: Female

DRUGS (1)
  1. RID MOUSSE [Suspect]
     Indication: LICE INFESTATION
     Dosage: 1 DF, UNK
     Route: 061

REACTIONS (1)
  - PARAESTHESIA [None]
